FAERS Safety Report 7004173-6 (Version None)
Quarter: 2010Q3

REPORT INFORMATION
  Report Type: 
  Country: None (occurrence: None)
  Receive Date: 20100920
  Receipt Date: 20100210
  Transmission Date: 20110219
  Serious: No
  Sender: FDA-Public Use
  Company Number: US-WYE-H13719110

PATIENT
  Sex: Female
  Weight: 70.37 kg

DRUGS (5)
  1. PRISTIQ [Suspect]
     Indication: DEPRESSION
     Route: 048
     Dates: start: 20090801, end: 20090101
  2. REQUIP [Concomitant]
  3. COREG [Concomitant]
  4. LAMOTRIGINE [Concomitant]
  5. LOSARTAN POTASSIUM [Concomitant]

REACTIONS (2)
  - AGITATION [None]
  - INSOMNIA [None]
